FAERS Safety Report 5797575-7 (Version None)
Quarter: 2008Q3

REPORT INFORMATION
  Report Type: 
  Country: None (occurrence: None)
  Receive Date: 20080702
  Receipt Date: 20080604
  Transmission Date: 20090109
  Serious: No
  Sender: FDA-Public Use
  Company Number: US-BAYER-200816217NA

PATIENT
  Age: 69 Year
  Sex: Male

DRUGS (1)
  1. ULTRAVIST 370 [Suspect]
     Indication: COMPUTERISED TOMOGRAM
     Dosage: TOTAL DAILY DOSE: 75 ML
     Route: 042

REACTIONS (2)
  - ASTHENIA [None]
  - URTICARIA [None]
